FAERS Safety Report 26081831 (Version 2)
Quarter: 2025Q4

REPORT INFORMATION
  Report Type: Spontaneous
  Country: GB (occurrence: GB)
  Receive Date: 20251124
  Receipt Date: 20251217
  Transmission Date: 20260118
  Serious: Yes (Other)
  Sender: TEVA
  Company Number: GB-MHRA-37595727

PATIENT
  Age: 79 Year

DRUGS (5)
  1. TAMOXIFEN [Suspect]
     Active Substance: TAMOXIFEN
     Indication: Invasive ductal breast carcinoma
     Route: 065
  2. CLARITHROMYCIN [Suspect]
     Active Substance: CLARITHROMYCIN
     Indication: Product used for unknown indication
     Route: 065
  3. ARIMIDEX [Suspect]
     Active Substance: ANASTROZOLE
     Indication: Invasive ductal breast carcinoma
     Route: 065
  4. THIORIDAZINE HYDROCHLORIDE [Suspect]
     Active Substance: THIORIDAZINE HYDROCHLORIDE
     Indication: Product used for unknown indication
     Dosage: AT NIGHT
     Route: 065
  5. AMLODIPINE [Suspect]
     Active Substance: AMLODIPINE BESYLATE
     Indication: Hypertension
     Dosage: ZENTIVA
     Route: 065
     Dates: start: 1967

REACTIONS (34)
  - Psychotic disorder [Unknown]
  - Muscle spasms [Unknown]
  - Abdominal distension [Unknown]
  - Rhinorrhoea [Unknown]
  - Tongue movement disturbance [Unknown]
  - Photophobia [Unknown]
  - Hypoxia [Unknown]
  - Irritable bowel syndrome [Unknown]
  - Erythema [Unknown]
  - Dyspnoea [Unknown]
  - Pruritus [Unknown]
  - Hepatic function abnormal [Unknown]
  - Micturition urgency [Unknown]
  - Muscle tightness [Unknown]
  - Weight increased [Unknown]
  - Bradykinesia [Unknown]
  - Tinnitus [Unknown]
  - Abdominal pain [Unknown]
  - Visual impairment [Unknown]
  - Dystonia [Unknown]
  - Bipolar I disorder [Unknown]
  - Hyperacusis [Unknown]
  - Chronic fatigue syndrome [Unknown]
  - Wheezing [Unknown]
  - Back pain [Unknown]
  - Tardive dyskinesia [Unknown]
  - Movement disorder [Unknown]
  - Discoloured vomit [Unknown]
  - Nausea [Unknown]
  - Visual impairment [Unknown]
  - Ocular hyperaemia [Unknown]
  - Malaise [Unknown]
  - Dry mouth [Unknown]
  - Hyperglycaemia [Unknown]
